FAERS Safety Report 4439538-X (Version None)
Quarter: 2004Q3

REPORT INFORMATION
  Report Type: 
  Country: None (occurrence: None)
  Receive Date: 20040830
  Receipt Date: 20040813
  Transmission Date: 20050211
  Serious: Yes (Death)
  Sender: FDA-Public Use
  Company Number: 2004AP03952

PATIENT
  Age: 77 Year
  Sex: Male

DRUGS (9)
  1. ZOLADEX [Suspect]
     Indication: PROSTATE CANCER
     Dosage: 3.6 MG Q4WK SQ
     Route: 058
     Dates: start: 20000913
  2. ZOLADEX [Suspect]
     Indication: PROSTATE CANCER
     Dosage: 10.8 MG Q3MO  SQ
     Route: 058
     Dates: start: 20020812, end: 20040709
  3. CASODEX [Concomitant]
  4. ESTRACYT [Concomitant]
  5. PROSEXOL [Concomitant]
  6. DECADRON [Concomitant]
  7. PROPYLTHIOURACIL [Concomitant]
  8. HUSTAZOL [Concomitant]
  9. MUCOSOLVAN [Concomitant]

REACTIONS (8)
  - ANURIA [None]
  - INTERSTITIAL LUNG DISEASE [None]
  - LOSS OF CONSCIOUSNESS [None]
  - MALIGNANT NEOPLASM PROGRESSION [None]
  - OPPORTUNISTIC INFECTION [None]
  - PNEUMOCYSTIS CARINII INFECTION [None]
  - PROSTATE CANCER [None]
  - PYREXIA [None]
